FAERS Safety Report 8622902-2 (Version None)
Quarter: 2012Q3

REPORT INFORMATION
  Report Type: 
  Country: None (occurrence: None)
  Receive Date: 20120827
  Receipt Date: 20120821
  Transmission Date: 20120928
  Serious: Yes (Other)
  Sender: FDA-Public Use
  Company Number: PHHY2012CA069493

PATIENT
  Sex: Male

DRUGS (3)
  1. ZOLEDRONOC ACID [Suspect]
     Dosage: ANNUALLY
     Route: 042
     Dates: start: 20101013
  2. ZOLEDRONOC ACID [Suspect]
     Indication: OSTEOPOROSIS
     Dosage: ANNUALLY
     Route: 042
     Dates: start: 20090319
  3. ZOLEDRONOC ACID [Suspect]
     Dosage: ANNUALLY
     Route: 042
     Dates: start: 20111026

REACTIONS (2)
  - WHIPPLE'S DISEASE [None]
  - HYPERTHERMIA [None]
